FAERS Safety Report 5833887-6 (Version None)
Quarter: 2008Q3

REPORT INFORMATION
  Report Type: 
  Country: None (occurrence: None)
  Receive Date: 20080805
  Receipt Date: 20080801
  Transmission Date: 20090109
  Serious: Yes (Hospitalization, Other)
  Sender: FDA-Public Use
  Company Number: A0737507A

PATIENT
  Age: 46 Year
  Sex: Female
  Weight: 174 kg

DRUGS (3)
  1. TREXIMET [Suspect]
     Indication: MIGRAINE
     Route: 048
     Dates: start: 20080620, end: 20080620
  2. TOPAMAX [Concomitant]
     Dosage: 25MG UNKNOWN
     Route: 048
     Dates: start: 20080620
  3. CELEXA [Concomitant]
     Dosage: 60MG UNKNOWN
     Route: 048

REACTIONS (7)
  - ARTERIOSPASM CORONARY [None]
  - CHEST DISCOMFORT [None]
  - CHEST PAIN [None]
  - DIARRHOEA [None]
  - HYPOAESTHESIA [None]
  - MYOCARDIAL INFARCTION [None]
  - NAUSEA [None]
